FAERS Safety Report 17423470 (Version 1)
Quarter: 2020Q1

REPORT INFORMATION
  Report Type: Spontaneous
  Country: GB (occurrence: GB)
  Receive Date: 20200217
  Receipt Date: 20200217
  Transmission Date: 20200409
  Serious: Yes (Hospitalization, Other)
  Sender: FDA-Public Use
  Company Number: GB-ALKEM LABORATORIES LIMITED-GB-ALKEM-2019-08106

PATIENT
  Age: 34 Year
  Sex: Female

DRUGS (1)
  1. CEPHALEXIN. [Suspect]
     Active Substance: CEPHALEXIN
     Indication: URINARY TRACT INFECTION
     Dosage: 250 MILLIGRAM, QD
     Route: 048
     Dates: start: 20190822, end: 20190822

REACTIONS (2)
  - Anaphylactic reaction [Recovering/Resolving]
  - Maternal exposure during pregnancy [Unknown]
